FAERS Safety Report 4921309-9 (Version None)
Quarter: 2006Q1

REPORT INFORMATION
  Report Type: 
  Country: None (occurrence: None)
  Receive Date: 20060224
  Receipt Date: 20060214
  Transmission Date: 20060701
  Serious: Yes (Other)
  Sender: FDA-Public Use
  Company Number: DE-JNJFOC-20060203750

PATIENT
  Sex: Female
  Weight: 60 kg

DRUGS (6)
  1. REMINYL [Suspect]
     Indication: VASCULAR DEMENTIA
     Route: 048
  2. REMINYL [Suspect]
     Route: 048
  3. METFORMIN HCL [Concomitant]
     Route: 065
  4. METOPROLOL [Concomitant]
     Route: 065
  5. RAMIPRIL [Concomitant]
     Route: 065
  6. LACTULOSE [Concomitant]
     Route: 065

REACTIONS (2)
  - DYSPHAGIA [None]
  - PNEUMONIA ASPIRATION [None]
